FAERS Safety Report 8799885 (Version 1)
Quarter: 2012Q4

REPORT INFORMATION
  Report Type: Spontaneous
  Country: US (occurrence: None)
  Receive Date: 20120918
  Receipt Date: 20120918
  Transmission Date: 20130627
  Serious: No
  Sender: FDA-Public Use
  Company Number: None

PATIENT
  Age: 66 Year
  Sex: Male
  Weight: 91 kg

DRUGS (1)
  1. SULFAMETHOXAZOLE/TRIMETHOPRIM [Suspect]
     Indication: INFECTION
     Dosage: 1 tab bid po
     Route: 048
     Dates: start: 20120618, end: 20120628

REACTIONS (4)
  - Rash [None]
  - Burning sensation [None]
  - Pruritus [None]
  - Blister [None]
